FAERS Safety Report 24364574 (Version 4)
Quarter: 2025Q1

REPORT INFORMATION
  Report Type: Report from Study
  Country: JP (occurrence: JP)
  Receive Date: 20240926
  Receipt Date: 20250317
  Transmission Date: 20250409
  Serious: Yes (Hospitalization, Other)
  Sender: PFIZER
  Company Number: JP-PFIZER INC-PV202400123270

PATIENT
  Age: 74 Year
  Sex: Male
  Weight: 47 kg

DRUGS (12)
  1. ELRANATAMAB [Suspect]
     Active Substance: ELRANATAMAB
     Indication: Plasma cell myeloma
     Route: 058
     Dates: start: 20240625, end: 20240625
  2. ELRANATAMAB [Suspect]
     Active Substance: ELRANATAMAB
     Route: 058
     Dates: start: 20240628, end: 20240628
  3. ELRANATAMAB [Suspect]
     Active Substance: ELRANATAMAB
     Dosage: 76 MG, ONCE A WEEK
     Route: 058
     Dates: start: 20240702, end: 20240913
  4. MIROGABALIN BESYLATE [Concomitant]
     Active Substance: MIROGABALIN BESYLATE
     Indication: Back pain
     Dosage: 5 MG, 2X/DAY
     Route: 048
     Dates: start: 20230427
  5. CELECOXIB [Concomitant]
     Active Substance: CELECOXIB
     Indication: Back pain
     Dosage: 100 MG, 2X/DAY
     Route: 048
     Dates: start: 20230427
  6. ACETAMINOPHEN\TRAMADOL HYDROCHLORIDE [Concomitant]
     Active Substance: ACETAMINOPHEN\TRAMADOL HYDROCHLORIDE
     Indication: Back pain
     Dosage: 1 DF, 4X/DAY
     Dates: start: 20230427
  7. FLUCONAZOLE [Concomitant]
     Active Substance: FLUCONAZOLE
     Indication: Infection prophylaxis
     Dosage: 100 MG, 1X/DAY
     Route: 048
     Dates: start: 20230427
  8. SULFAMETHOXAZOLE\TRIMETHOPRIM [Concomitant]
     Active Substance: SULFAMETHOXAZOLE\TRIMETHOPRIM
     Indication: Infection prophylaxis
     Dosage: 0.5 DF, 1X/DAY
     Route: 048
     Dates: start: 20170824
  9. ACYCLOVIR [Concomitant]
     Active Substance: ACYCLOVIR
     Indication: Infection prophylaxis
     Dosage: 100 MG, 1X/DAY
  10. LANSOPRAZOLE [Concomitant]
     Active Substance: LANSOPRAZOLE
     Indication: Prophylaxis against gastrointestinal ulcer
     Route: 048
     Dates: start: 20170824
  11. ALFACALCIDOL [Concomitant]
     Active Substance: ALFACALCIDOL
     Indication: Bone lesion
     Route: 048
     Dates: start: 20230427
  12. CALCIUM POLYSTYRENE SULFONATE [Concomitant]
     Active Substance: CALCIUM POLYSTYRENE SULFONATE
     Indication: Hyperkalaemia
     Route: 048
     Dates: start: 20230427

REACTIONS (1)
  - Cytomegalovirus viraemia [Recovered/Resolved with Sequelae]

NARRATIVE: CASE EVENT DATE: 20240716
